FAERS Safety Report 16207532 (Version 1)
Quarter: 2019Q2

REPORT INFORMATION
  Report Type: Spontaneous
  Country: CA (occurrence: CA)
  Receive Date: 20190417
  Receipt Date: 20190417
  Transmission Date: 20190711
  Serious: Yes (Death)
  Sender: FDA-Public Use
  Company Number: CA-PFIZER INC-2019162007

PATIENT
  Age: 60 Year
  Sex: Female
  Weight: 105 kg

DRUGS (1)
  1. TRANEXAMIC ACID. [Suspect]
     Active Substance: TRANEXAMIC ACID
     Indication: KNEE ARTHROPLASTY
     Dosage: 2 G, ONCE
     Route: 042

REACTIONS (2)
  - Cerebrovascular accident [Fatal]
  - Cerebral artery thrombosis [Fatal]
